FAERS Safety Report 4312764-6 (Version None)
Quarter: 2004Q1

REPORT INFORMATION
  Report Type: 
  Country: None (occurrence: None)
  Receive Date: 20040305
  Receipt Date: 20040302
  Transmission Date: 20041129
  Serious: Yes (Death)
  Sender: FDA-Public Use
  Company Number: 01-12-0683

PATIENT
  Age: 20 Year
  Sex: Male

DRUGS (3)
  1. CLOZAPINE [Suspect]
     Indication: SCHIZOAFFECTIVE DISORDER
     Dosage: 300MG QHS ORAL
     Route: 048
     Dates: start: 20001028, end: 20010128
  2. CLOZAPINE [Suspect]
     Indication: SCHIZOAFFECTIVE DISORDER
     Dosage: 300MG QHS ORAL
     Route: 048
     Dates: start: 20001028, end: 20010128
  3. LORAZEPAM [Concomitant]

REACTIONS (8)
  - ALCOHOL USE [None]
  - ANXIETY [None]
  - DIARRHOEA [None]
  - DRUG TOXICITY [None]
  - NAUSEA [None]
  - PSYCHOTIC DISORDER [None]
  - SALIVARY HYPERSECRETION [None]
  - VOMITING [None]
